FAERS Safety Report 5022236-1 (Version None)
Quarter: 2006Q2

REPORT INFORMATION
  Report Type: 
  Country: None (occurrence: None)
  Receive Date: 20060609
  Receipt Date: 20060421
  Transmission Date: 20061013
  Serious: Yes (Other)
  Sender: FDA-Public Use
  Company Number: 2006AC00801

PATIENT
  Age: 60 Year
  Sex: Male

DRUGS (4)
  1. CRESTOR [Suspect]
     Route: 048
  2. CRESTOR [Suspect]
     Route: 048
     Dates: end: 20051201
  3. FELDENE [Concomitant]
     Indication: BACK DISORDER
  4. CIPROFLOXACIN [Concomitant]
     Indication: ILL-DEFINED DISORDER

REACTIONS (3)
  - PROTEINURIA [None]
  - RENAL ATROPHY [None]
  - RENAL IMPAIRMENT [None]
